FAERS Safety Report 7308233-1 (Version None)
Quarter: 2011Q1

REPORT INFORMATION
  Report Type: 
  Country: None (occurrence: None)
  Receive Date: 20110223
  Receipt Date: 20110213
  Transmission Date: 20110831
  Serious: Yes (Other)
  Sender: FDA-Public Use
  Company Number: FR-GENZYME-CERZ-1001879

PATIENT
  Age: 15 Year
  Sex: Male

DRUGS (2)
  1. CEREZYME [Suspect]
     Indication: GAUCHER'S DISEASE
     Dosage: 140 U/KG, Q2W
     Route: 042
  2. CEREZYME [Suspect]
     Dosage: 60 U/KG, Q2W
     Route: 042

REACTIONS (5)
  - DEVELOPMENTAL DELAY [None]
  - PYRAMIDAL TRACT SYNDROME [None]
  - MENTAL RETARDATION [None]
  - HYPOTONIA [None]
  - AGGRESSION [None]
